FAERS Safety Report 10154436 (Version 1)
Quarter: 2014Q2

REPORT INFORMATION
  Report Type: Spontaneous
  Country: FR (occurrence: FR)
  Receive Date: 20140506
  Receipt Date: 20140506
  Transmission Date: 20141212
  Serious: Yes (Life-Threatening, Hospitalization)
  Sender: FDA-Public Use
  Company Number: FR-JNJFOC-20140501391

PATIENT
  Age: 74 Year
  Sex: Male
  Weight: 71 kg

DRUGS (6)
  1. XARELTO [Suspect]
     Indication: CEREBROVASCULAR ACCIDENT PROPHYLAXIS
     Route: 048
     Dates: start: 201402, end: 20140410
  2. XARELTO [Suspect]
     Indication: ATRIAL FIBRILLATION
     Route: 048
     Dates: start: 201402, end: 20140410
  3. TAHOR [Concomitant]
     Dosage: 10 UNSPECIFIED UNITS
     Route: 065
     Dates: start: 2002
  4. CARDENSIEL [Concomitant]
     Dosage: 2.5 UNSPECIFIED UNITS
     Route: 065
     Dates: start: 2002
  5. CORDARONE [Concomitant]
     Indication: ATRIAL FIBRILLATION
     Route: 048
     Dates: start: 201402
  6. KARDEGIC [Concomitant]
     Dosage: 75 UNSPECIFIED UNITS
     Route: 065
     Dates: start: 2002

REACTIONS (2)
  - Atrial thrombosis [Not Recovered/Not Resolved]
  - Drug ineffective [Not Recovered/Not Resolved]
